FAERS Safety Report 5135848-1 (Version None)
Quarter: 2006Q4

REPORT INFORMATION
  Report Type: 
  Country: None (occurrence: None)
  Receive Date: 20061020
  Receipt Date: 20061011
  Transmission Date: 20070319
  Serious: Yes (Other)
  Sender: FDA-Public Use
  Company Number: 060176

PATIENT
  Age: 7 Year
  Sex: Female
  Weight: 19.5047 kg

DRUGS (4)
  1. POLYETHYLENE GLYCOL 3350 [Suspect]
     Indication: CONSTIPATION
     Dosage: 17G, DAILY, PO
     Route: 048
  2. MAGNESIUM CITRATE [Concomitant]
  3. ASCORBIC ACID [Concomitant]
  4. FIBERSURE [Concomitant]

REACTIONS (10)
  - ABDOMINAL DISTENSION [None]
  - ABNORMAL BEHAVIOUR [None]
  - ANXIETY [None]
  - ATTENTION DEFICIT/HYPERACTIVITY DISORDER [None]
  - FLUID INTAKE REDUCED [None]
  - NEUROLOGICAL SYMPTOM [None]
  - REFUSAL OF TREATMENT BY RELATIVE [None]
  - SPEECH DISORDER [None]
  - TOURETTE'S DISORDER [None]
  - WEIGHT INCREASED [None]
